FAERS Safety Report 8960806 (Version 5)
Quarter: 2014Q2

REPORT INFORMATION
  Report Type: Spontaneous
  Country: US (occurrence: US)
  Receive Date: 20121212
  Receipt Date: 20140429
  Transmission Date: 20141212
  Serious: Yes (Hospitalization, Other)
  Sender: FDA-Public Use
  Company Number: US-PFIZER INC-2012258925

PATIENT
  Age: 34 Year
  Sex: Male
  Weight: 90.72 kg

DRUGS (6)
  1. SOMAVERT [Suspect]
     Indication: ACROMEGALY
     Dosage: 40 MG (20 MG VIAL X TWO VIALS), LOADING DOSE
     Route: 058
     Dates: start: 20121011, end: 20121011
  2. ANDROGEL [Concomitant]
     Indication: TESTICULAR FAILURE
     Dosage: 2 SQUIRTS, DAILY
     Route: 062
     Dates: start: 20121011, end: 20130110
  3. METFORMIN [Concomitant]
     Dosage: 500 MG, 3X/DAY
     Route: 048
  4. CORTEF [Concomitant]
     Dosage: 20 MG, 1X/DAY
     Route: 048
  5. CORTEF [Concomitant]
     Dosage: 10 MG (HALF OF A 20 MG PILL), 1X/DAY
     Route: 048
  6. INSULIN [Concomitant]
     Dosage: UNK, DAILY
     Route: 058

REACTIONS (6)
  - Drug hypersensitivity [Recovered/Resolved]
  - Urticaria [Recovered/Resolved]
  - Dyspnoea [Recovered/Resolved]
  - Hypotension [Recovered/Resolved]
  - Respiratory disorder [Recovered/Resolved]
  - Palpitations [Unknown]
